FAERS Safety Report 4717539-1 (Version None)
Quarter: 2005Q3

REPORT INFORMATION
  Report Type: 
  Country: None (occurrence: None)
  Receive Date: 20050715
  Receipt Date: 20050701
  Transmission Date: 20060218
  Serious: Yes (Hospitalization)
  Sender: FDA-Public Use
  Company Number: 2005-BP-11150RO

PATIENT
  Age: 64 Year
  Sex: Male

DRUGS (4)
  1. DEXAMETHASONE [Suspect]
     Indication: MULTIPLE MYELOMA
     Dosage: 40MG/D X 3D, THEN 7D OFF (4 MG), PO
     Route: 048
     Dates: start: 20040701
  2. THALIDOMIDE (THALIDOMIDE) [Suspect]
     Indication: MULTIPLE MYELOMA
     Dosage: 100 MG TO 200 MG/DAY , PO
     Route: 048
     Dates: start: 20040701
  3. VASOTEC [Concomitant]
  4. TRANDATE [Concomitant]

REACTIONS (6)
  - ABDOMINAL DISTENSION [None]
  - ATRIAL FIBRILLATION [None]
  - CONSTIPATION [None]
  - DRUG INTERACTION [None]
  - FLATULENCE [None]
  - HICCUPS [None]
